FAERS Safety Report 25240635 (Version 1)
Quarter: 2025Q2

REPORT INFORMATION
  Report Type: Spontaneous
  Country: US (occurrence: None)
  Receive Date: 20250425
  Receipt Date: 20250425
  Transmission Date: 20250717
  Serious: Yes (Other)
  Sender: FDA-CTU
  Company Number: None

PATIENT
  Age: 70 Year
  Sex: Male
  Weight: 106.59 kg

DRUGS (17)
  1. OZEMPIC [Suspect]
     Active Substance: SEMAGLUTIDE
     Indication: Diabetes mellitus
     Dosage: OTHER QUANTITY : 2 MG ;?FREQUENCY : WEEKLY;?OTHER ROUTE : INJECTION ;?
     Route: 050
     Dates: start: 20231020, end: 20250212
  2. C-PAP [Concomitant]
  3. LATANOPROST [Concomitant]
     Active Substance: LATANOPROST
  4. LANTUS [Concomitant]
     Active Substance: INSULIN GLARGINE
  5. Clopidigril [Concomitant]
  6. VALSARTAN [Concomitant]
     Active Substance: VALSARTAN
  7. METOPROLOL [Concomitant]
     Active Substance: METOPROLOL
  8. METFORMIN [Concomitant]
     Active Substance: METFORMIN HYDROCHLORIDE
  9. HYDROCHLOROTHIAZIDE [Concomitant]
     Active Substance: HYDROCHLOROTHIAZIDE
  10. HYDRALAZINE [Concomitant]
     Active Substance: HYDRALAZINE HYDROCHLORIDE
  11. Amlodipine bes. [Concomitant]
  12. TERAZOSIN [Concomitant]
     Active Substance: TERAZOSIN HYDROCHLORIDE
  13. Nitriglcesine [Concomitant]
  14. VITAMINS [Concomitant]
     Active Substance: VITAMINS
  15. FISH OIL [Concomitant]
     Active Substance: FISH OIL
  16. Afrin HS [Concomitant]
  17. Perser Vision [Concomitant]

REACTIONS (3)
  - Incision site discharge [None]
  - Impaired healing [None]
  - Wound infection [None]

NARRATIVE: CASE EVENT DATE: 20240804
